FAERS Safety Report 12001266 (Version 3)
Quarter: 2016Q1

REPORT INFORMATION
  Report Type: Report from Study
  Country: ES (occurrence: ES)
  Receive Date: 20160204
  Receipt Date: 20160318
  Transmission Date: 20160526
  Serious: Yes (Hospitalization, Other)
  Sender: FDA-Public Use
  Company Number: ES-ABBVIE-16P-144-1549071-00

PATIENT
  Age: 75 Year
  Sex: Female

DRUGS (1)
  1. DUODOPA [Suspect]
     Active Substance: CARBIDOPA\LEVODOPA
     Indication: PARKINSON^S DISEASE
     Route: 050
     Dates: start: 201003

REACTIONS (10)
  - Pyrexia [Unknown]
  - Abdominal pain [Unknown]
  - Device dislocation [Unknown]
  - Respiratory distress [Recovered/Resolved]
  - Myopathy [Unknown]
  - Intestinal obstruction [Unknown]
  - Oxygen saturation decreased [Unknown]
  - Perforation [Unknown]
  - Stoma site infection [Unknown]
  - Medical induction of coma [Unknown]

NARRATIVE: CASE EVENT DATE: 201601
